FAERS Safety Report 19772767 (Version 2)
Quarter: 2021Q3

REPORT INFORMATION
  Report Type: Spontaneous
  Country: US (occurrence: US)
  Receive Date: 20210831
  Receipt Date: 20210908
  Transmission Date: 20211014
  Serious: Yes (Other)
  Sender: FDA-Public Use
  Company Number: US-009507513-2108USA006312

PATIENT
  Age: 62 Year
  Sex: Female
  Weight: 84.35 kg

DRUGS (15)
  1. ZINPLAVA [Suspect]
     Active Substance: BEZLOTOXUMAB
     Dosage: UNK
     Dates: start: 20210816, end: 20210816
  2. POTASSIUM [Concomitant]
     Active Substance: POTASSIUM
     Dosage: 99MG DAILY
  3. VANCOMYCIN [Concomitant]
     Active Substance: VANCOMYCIN
     Indication: CLOSTRIDIUM DIFFICILE INFECTION
     Dosage: 125MG ORAL TABLET 4 TIMES DAILY FOR 30 DAYS
     Dates: start: 20210101
  4. CELECOXIB. [Concomitant]
     Active Substance: CELECOXIB
     Dosage: 100MG TWICE DAILY
  5. MULTIVITAMINS [VITAMINS NOS] [Concomitant]
     Active Substance: VITAMINS
     Dosage: DAILY
  6. VANCOMYCIN [Concomitant]
     Active Substance: VANCOMYCIN
     Dosage: VANCO TAPER
  7. ALPRAZOLAM. [Concomitant]
     Active Substance: ALPRAZOLAM
     Dosage: 0.125 MG AS NEEDED
  8. AMLODIPINE [Concomitant]
     Active Substance: AMLODIPINE BESYLATE
     Dosage: 5 MG DAILY
  9. SERTRALINE [Concomitant]
     Active Substance: SERTRALINE HYDROCHLORIDE
     Dosage: 10MG AS NEEDED
  10. GABAPENTIN. [Concomitant]
     Active Substance: GABAPENTIN
     Dosage: 300MG THREE TIMES DAILY
  11. METAXALONE. [Concomitant]
     Active Substance: METAXALONE
     Dosage: 800MG THREE TIMES A DAY AS NEEDED
  12. MAGNESIUM OXIDE. [Concomitant]
     Active Substance: MAGNESIUM OXIDE
     Dosage: 400MG DAILY
  13. ZOFRAN [Concomitant]
     Active Substance: ONDANSETRON HYDROCHLORIDE
     Dosage: 4MG EVERY 8 HOURS AS NEEDED
  14. FAMOTIDINE. [Concomitant]
     Active Substance: FAMOTIDINE
     Dosage: 40MG AT NIGHT
  15. VITAMIN D3 [Concomitant]
     Active Substance: CHOLECALCIFEROL
     Dosage: 125 MICROGRAMS DAILY

REACTIONS (1)
  - Clostridium difficile infection [Unknown]

NARRATIVE: CASE EVENT DATE: 202108
